FAERS Safety Report 10992726 (Version 1)
Quarter: 2015Q2

REPORT INFORMATION
  Report Type: Spontaneous
  Country: US (occurrence: US)
  Receive Date: 20150406
  Receipt Date: 20150406
  Transmission Date: 20150821
  Serious: Yes (Death)
  Sender: FDA-Public Use
  Company Number: US-ASTELLAS-2015US011341

PATIENT
  Age: 53 Year
  Sex: Male

DRUGS (2)
  1. PROGRAF [Suspect]
     Active Substance: TACROLIMUS\TACROLIMUS ANHYDROUS
     Indication: LIVER TRANSPLANT
     Dosage: 1 CAPSULE, TWICE DAILY
     Route: 048
     Dates: start: 20150112, end: 20150127
  2. PROGRAF [Suspect]
     Active Substance: TACROLIMUS\TACROLIMUS ANHYDROUS
     Indication: LIVER TRANSPLANT
     Dosage: 2 CAPSULES, TWICE DAILY
     Route: 048
     Dates: start: 20150112, end: 20150127

REACTIONS (1)
  - Death [Fatal]

NARRATIVE: CASE EVENT DATE: 20150127
